FAERS Safety Report 21068778 (Version 3)
Quarter: 2022Q4

REPORT INFORMATION
  Report Type: Spontaneous
  Country: CN (occurrence: CN)
  Receive Date: 20220712
  Receipt Date: 20221004
  Transmission Date: 20230113
  Serious: Yes (Other)
  Sender: FDA-Public Use
  Company Number: CN-CSTONE PHARMACEUTICALS (SUZHOU) CO., LTD.-2022CN00949

PATIENT
  Age: 56 Year
  Sex: Male

DRUGS (1)
  1. AYVAKIT [Suspect]
     Active Substance: AVAPRITINIB
     Indication: Gastrointestinal stromal tumour
     Dosage: 200 MILLIGRAM, QD
     Route: 048
     Dates: start: 20220326

REACTIONS (5)
  - Choking [Unknown]
  - Lymphadenopathy [Unknown]
  - Wheezing [Unknown]
  - Dysphagia [Unknown]
  - Cough [Unknown]

NARRATIVE: CASE EVENT DATE: 20220501
